FAERS Safety Report 13861496 (Version 2)
Quarter: 2017Q3

REPORT INFORMATION
  Report Type: Spontaneous
  Country: AT (occurrence: AT)
  Receive Date: 20170811
  Receipt Date: 20170904
  Transmission Date: 20171127
  Serious: Yes (Death, Hospitalization, Other)
  Sender: FDA-Public Use
  Company Number: AT-BRISTOL-MYERS SQUIBB COMPANY-BMS-2017-071240

PATIENT
  Age: 72 Year
  Sex: Male

DRUGS (1)
  1. OPDIVO [Suspect]
     Active Substance: NIVOLUMAB
     Indication: METASTATIC SQUAMOUS CELL CARCINOMA
     Dosage: UNK
     Route: 065
     Dates: start: 20170613, end: 20170627

REACTIONS (4)
  - Hepatic failure [Fatal]
  - Haemorrhagic infarction [Fatal]
  - Renal failure [Unknown]
  - Portal vein thrombosis [Fatal]

NARRATIVE: CASE EVENT DATE: 20170704
